FAERS Safety Report 13988664 (Version 1)
Quarter: 2017Q3

REPORT INFORMATION
  Report Type: Spontaneous
  Country: US (occurrence: US)
  Receive Date: 20170919
  Receipt Date: 20170919
  Transmission Date: 20171128
  Serious: No
  Sender: FDA-Public Use
  Company Number: US-AMNEAL PHARMACEUTICALS-2016AMN00495

PATIENT
  Age: 55 Year
  Sex: Male
  Weight: 68.27 kg

DRUGS (4)
  1. OXYCONTIN [Concomitant]
     Active Substance: OXYCODONE HYDROCHLORIDE
     Indication: ABDOMINAL PAIN UPPER
     Dosage: 80 MG, 2X/DAY
     Dates: start: 201306
  2. LYRICA [Concomitant]
     Active Substance: PREGABALIN
     Indication: PAIN MANAGEMENT
     Dosage: 75 MG, 2X/DAY( ONE CAPSULE IN THE MORNING AND ONE IN THE EVENING)
     Route: 048
     Dates: start: 201607, end: 20160731
  3. GABAPENTIN. [Suspect]
     Active Substance: GABAPENTIN
     Indication: PAIN MANAGEMENT
     Dosage: 300 MG, 3X/DAY
     Dates: start: 201606
  4. LYRICA [Concomitant]
     Active Substance: PREGABALIN
     Dosage: UNK
     Dates: start: 201608

REACTIONS (6)
  - Drug ineffective [Unknown]
  - Product substitution issue [Not Recovered/Not Resolved]
  - Disturbance in attention [Unknown]
  - Abdominal pain [Recovering/Resolving]
  - Nausea [Unknown]
  - Feeling abnormal [Not Recovered/Not Resolved]

NARRATIVE: CASE EVENT DATE: 201606
